FAERS Safety Report 14890369 (Version 5)
Quarter: 2018Q4

REPORT INFORMATION
  Report Type: Spontaneous
  Country: US (occurrence: US)
  Receive Date: 20180514
  Receipt Date: 20181212
  Transmission Date: 20190204
  Serious: No
  Sender: FDA-Public Use
  Company Number: US-PFIZER INC-2018194938

PATIENT
  Age: 47 Year
  Sex: Female

DRUGS (6)
  1. PROTOPIC [Concomitant]
     Active Substance: TACROLIMUS
     Indication: PRURITUS
     Dosage: UNK
     Route: 061
     Dates: start: 20180111
  2. BENADRYL [Concomitant]
     Active Substance: DIPHENHYDRAMINE HYDROCHLORIDE
     Indication: PRURITUS
     Dosage: UNK
  3. PROTOPIC [Concomitant]
     Active Substance: TACROLIMUS
     Indication: RASH
  4. EUCRISA [Suspect]
     Active Substance: CRISABOROLE
     Indication: NEURODERMATITIS
     Dosage: 1 DF, 2X/DAY (1 APPLICATION TO AFFECTED AREAS)
     Route: 061
     Dates: start: 20180111, end: 20180425
  5. EUCRISA [Suspect]
     Active Substance: CRISABOROLE
     Indication: PRURITUS
  6. EUCRISA [Suspect]
     Active Substance: CRISABOROLE
     Indication: RASH

REACTIONS (2)
  - Urticaria [Recovered/Resolved]
  - Rash macular [Recovered/Resolved]
